FAERS Safety Report 9394396 (Version 2)
Quarter: 2013Q3

REPORT INFORMATION
  Report Type: Spontaneous
  Country: GB (occurrence: GB)
  Receive Date: 20130711
  Receipt Date: 20130802
  Transmission Date: 20140515
  Serious: Yes (Other)
  Sender: FDA-Public Use
  Company Number: GB-BAYER-2013-082158

PATIENT
  Age: 51 Year
  Sex: Male

DRUGS (2)
  1. BETAFERON [Suspect]
     Dosage: 8 MIU, QOD
     Route: 058
     Dates: start: 20091007, end: 20100921
  2. EXTAVIA [Concomitant]
     Indication: MULTIPLE SCLEROSIS
     Dosage: UNK
     Dates: start: 201009

REACTIONS (2)
  - Pancreatic carcinoma metastatic [None]
  - Type 2 diabetes mellitus [None]
